FAERS Safety Report 25372184 (Version 2)
Quarter: 2025Q2

REPORT INFORMATION
  Report Type: Report from Study
  Country: CN (occurrence: CN)
  Receive Date: 20250529
  Receipt Date: 20250613
  Transmission Date: 20250717
  Serious: Yes (Hospitalization, Other)
  Sender: NOVO NORDISK
  Company Number: CN-NOVOPROD-1341549

PATIENT
  Sex: Male
  Weight: 50 kg

DRUGS (4)
  1. NOVOEIGHT [Suspect]
     Active Substance: ANTIHEMOPHILIC FACTOR, HUMAN RECOMBINANT
     Indication: Factor VIII deficiency
     Dosage: 3000 IU, QOD
     Route: 042
     Dates: start: 202411
  2. NOVOEIGHT [Suspect]
     Active Substance: ANTIHEMOPHILIC FACTOR, HUMAN RECOMBINANT
     Dosage: 3000 IU, QOD
     Route: 042
     Dates: start: 20250605
  3. NOVOEIGHT [Suspect]
     Active Substance: ANTIHEMOPHILIC FACTOR, HUMAN RECOMBINANT
     Dosage: 3000 IU, QOD
     Route: 042
     Dates: start: 20250520
  4. NOVOEIGHT [Suspect]
     Active Substance: ANTIHEMOPHILIC FACTOR, HUMAN RECOMBINANT
     Route: 042

REACTIONS (23)
  - Anti factor VIII antibody increased [Recovering/Resolving]
  - Condition aggravated [Recovering/Resolving]
  - Haemarthrosis [Unknown]
  - Haemarthrosis [Unknown]
  - Muscle haemorrhage [Recovered/Resolved]
  - Muscle haemorrhage [Recovered/Resolved]
  - Muscle haemorrhage [Unknown]
  - Haemophilic arthropathy [Unknown]
  - Melaena [Recovered/Resolved]
  - Oedema peripheral [Unknown]
  - Pain in extremity [Unknown]
  - Pain in extremity [Unknown]
  - Peripheral swelling [Unknown]
  - Peripheral swelling [Unknown]
  - Haematoma muscle [Unknown]
  - Abdominal pain [Unknown]
  - Haematuria [Unknown]
  - Gingival bleeding [Unknown]
  - Arthralgia [Unknown]
  - Arthralgia [Unknown]
  - Haemorrhage [Unknown]
  - Knee deformity [Unknown]
  - Finger deformity [Unknown]

NARRATIVE: CASE EVENT DATE: 20241216
